FAERS Safety Report 22265010 (Version 1)
Quarter: 2023Q2

REPORT INFORMATION
  Report Type: Spontaneous
  Country: US (occurrence: None)
  Receive Date: 20230426
  Receipt Date: 20230426
  Transmission Date: 20230722
  Serious: Yes (Death)
  Sender: FDA-Public Use
  Company Number: None

PATIENT
  Age: 76 Year
  Sex: Male
  Weight: 48.31 kg

DRUGS (2)
  1. ABEMACICLIB [Suspect]
     Active Substance: ABEMACICLIB
     Indication: Prostate cancer metastatic
     Dosage: FREQUENCY : TWICE A DAY;?
     Route: 048
     Dates: start: 20230127, end: 20230315
  2. ATEZOLIZUMAB [Suspect]
     Active Substance: ATEZOLIZUMAB
     Indication: Prostate cancer metastatic
     Dosage: OTHER FREQUENCY : EVERY 21 DAYS;?
     Dates: start: 20230127, end: 20230314

REACTIONS (20)
  - Nausea [None]
  - Vomiting [None]
  - Fatigue [None]
  - Dizziness [None]
  - Urinary tract infection [None]
  - Atrial fibrillation [None]
  - Pyelonephritis [None]
  - Bacteraemia [None]
  - Sepsis [None]
  - Acute kidney injury [None]
  - Thrombocytopenia [None]
  - Tachycardia [None]
  - Tachypnoea [None]
  - Dysphagia [None]
  - Increased bronchial secretion [None]
  - Ejection fraction decreased [None]
  - White blood cell count increased [None]
  - Productive cough [None]
  - Dyspnoea [None]
  - Systemic immune activation [None]

NARRATIVE: CASE EVENT DATE: 20230316
